FAERS Safety Report 8736222 (Version 2)
Quarter: 2012Q4

REPORT INFORMATION
  Report Type: 
  Country: US (occurrence: US)
  Receive Date: 20120822
  Receipt Date: 20120830
  Transmission Date: 20130627
  Serious: Yes (Hospitalization)
  Sender: FDA-Public Use
  Company Number: US-UCBSA-063812

PATIENT
  Age: 60 Year
  Sex: Female
  Weight: 83.91 kg

DRUGS (8)
  1. CIMZIA [Suspect]
     Indication: CROHN^S DISEASE
     Dosage: SELF ADMINISTRATION IN LEGS
     Route: 058
     Dates: start: 20110816
  2. PREDNISONE [Concomitant]
     Indication: CROHN^S DISEASE
     Dosage: DAILY(TITRATING DOWN BY INCEMENTS OF 5 MG Q 2 WEEKS)
     Route: 048
     Dates: start: 20120710
  3. PREDNISONE [Concomitant]
     Indication: OCULAR HYPERAEMIA
     Dosage: DAILY(TITRATING DOWN BY INCEMENTS OF 5 MG Q 2 WEEKS)
     Route: 048
     Dates: start: 20120710
  4. ASACOL [Concomitant]
     Indication: CROHN^S DISEASE
     Dosage: 4-5 YEARS
     Route: 048
  5. IMURAN [Concomitant]
     Indication: CROHN^S DISEASE
     Dosage: 50 MG 2 PILLS ONCE A DAY, 3 YEARS
     Route: 048
  6. METFORMIN [Concomitant]
     Indication: TYPE 2 DIABETES MELLITUS
     Route: 048
     Dates: start: 2005
  7. SYNTHROID [Concomitant]
     Indication: HYPOTHYROIDISM
     Route: 048
     Dates: start: 2005
  8. PRILOSEC [Concomitant]
     Indication: GASTROOESOPHAGEAL REFLUX DISEASE
     Dosage: 2 YEARS, WITH MEALS
     Route: 048

REACTIONS (3)
  - Blood glucose increased [Recovering/Resolving]
  - Crohn^s disease [Recovered/Resolved]
  - Ocular hyperaemia [Recovered/Resolved]
